FAERS Safety Report 4367234-6 (Version None)
Quarter: 2004Q2

REPORT INFORMATION
  Report Type: 
  Country: None (occurrence: None)
  Receive Date: 20040526
  Receipt Date: 20040511
  Transmission Date: 20050107
  Serious: Yes (Disabling)
  Sender: FDA-Public Use
  Company Number: 2004UW10299

PATIENT
  Age: 74 Year
  Sex: Male

DRUGS (1)
  1. ELAVIL [Suspect]
     Indication: TENSION HEADACHE
     Dosage: 25 MG DAILY PO
     Route: 048
     Dates: start: 20040201, end: 20040428

REACTIONS (2)
  - APHONIA [None]
  - THROAT IRRITATION [None]
